FAERS Safety Report 9166547 (Version 1)
Quarter: 2013Q1

REPORT INFORMATION
  Report Type: Spontaneous
  Country: US (occurrence: US)
  Receive Date: 20130315
  Receipt Date: 20130315
  Transmission Date: 20140127
  Serious: Yes (Other)
  Sender: FDA-Public Use
  Company Number: CHPA2013US004384

PATIENT
  Age: 49 Year
  Sex: Female

DRUGS (3)
  1. PRIVATE LABEL [Suspect]
     Indication: SMOKING CESSATION THERAPY
     Dosage: 21 MG, QD
     Route: 062
     Dates: start: 20130308, end: 20130308
  2. ADVAIR [Concomitant]
     Dosage: 2 PUFFS, BID
     Dates: start: 201204
  3. LOSARTAN [Concomitant]
     Indication: HYPERTENSION

REACTIONS (2)
  - Chronic obstructive pulmonary disease [Unknown]
  - Dyspnoea [Unknown]
